FAERS Safety Report 6981033-8 (Version None)
Quarter: 2010Q3

REPORT INFORMATION
  Report Type: 
  Country: None (occurrence: None)
  Receive Date: 20100914
  Receipt Date: 20100903
  Transmission Date: 20110219
  Serious: Yes (Other)
  Sender: FDA-Public Use
  Company Number: GXKR2010US10029

PATIENT
  Age: 8 Year
  Sex: Female

DRUGS (8)
  1. METHYLPREDNISOLONE 4MG TAB [Suspect]
     Indication: DERMATOMYOSITIS
     Dosage: 30 MG/KG/DAY (IV PULSE)
     Route: 042
  2. PREDNISONE (NGX) [Suspect]
     Indication: DERMATOMYOSITIS
     Dosage: 20 MG, BID
     Route: 065
  3. PREDNISONE (NGX) [Suspect]
     Dosage: 0.3 MG/KG DAILY
     Route: 048
  4. IMMU-G [Concomitant]
     Dosage: 2 G/KG (40 G) MONTHLY
     Route: 042
  5. METHOTREXATE [Concomitant]
     Indication: DERMATOMYOSITIS
     Dosage: 0.25 MG/KG (5 MG) WEEKLY
     Route: 048
  6. METHOTREXATE [Concomitant]
     Dosage: 0.5 MG/KG WEEKLY
  7. FOLIC ACID [Concomitant]
  8. RITUXIMAB [Concomitant]

REACTIONS (6)
  - JOINT CONTRACTURE [None]
  - OEDEMA PERIPHERAL [None]
  - OSTEONECROSIS [None]
  - OSTEOPENIA [None]
  - OSTEOPOROSIS [None]
  - PAIN IN EXTREMITY [None]
